FAERS Safety Report 9564250 (Version 1)
Quarter: 2013Q3

REPORT INFORMATION
  Report Type: Spontaneous
  Country: US (occurrence: US)
  Receive Date: 20130930
  Receipt Date: 20130930
  Transmission Date: 20140515
  Serious: No
  Sender: FDA-Public Use
  Company Number: US-009507513-1309USA012476

PATIENT
  Sex: Female

DRUGS (1)
  1. COSOPT [Suspect]
     Dosage: UNK
     Route: 047
     Dates: start: 2007

REACTIONS (1)
  - Alopecia [Unknown]
